FAERS Safety Report 6093892-4 (Version None)
Quarter: 2009Q1

REPORT INFORMATION
  Report Type: 
  Country: None (occurrence: None)
  Receive Date: 20090226
  Receipt Date: 20090224
  Transmission Date: 20090719
  Serious: Yes (Other)
  Sender: FDA-Public Use
  Company Number: AU-PFIZER INC-2009175368

PATIENT

DRUGS (3)
  1. LIPITOR [Suspect]
  2. CADUET [Suspect]
     Dosage: 20/10
  3. COVERSYL [Concomitant]

REACTIONS (1)
  - NEOPLASM MALIGNANT [None]
